FAERS Safety Report 8954683 (Version 1)
Quarter: 2012Q4

REPORT INFORMATION
  Report Type: 
  Country: US (occurrence: US)
  Receive Date: 20121207
  Receipt Date: 20121207
  Transmission Date: 20130627
  Serious: No
  Sender: FDA-Public Use
  Company Number: US-GLAXOSMITHKLINE-A0952705A

PATIENT
  Age: 58 Year
  Sex: Female

DRUGS (1)
  1. AVANDAMET [Suspect]
     Route: 065
     Dates: start: 20110427

REACTIONS (1)
  - Malaise [Unknown]
